FAERS Safety Report 7457113-X (Version None)
Quarter: 2011Q2

REPORT INFORMATION
  Report Type: 
  Country: None (occurrence: None)
  Receive Date: 20110504
  Receipt Date: 20110421
  Transmission Date: 20111010
  Serious: Yes (Other)
  Sender: FDA-Public Use
  Company Number: US-ELI_LILLY_AND_COMPANY-US201104003418

PATIENT
  Sex: Female

DRUGS (12)
  1. METOPROLOL SUCCINATE [Concomitant]
  2. OMEPRAZOLE [Concomitant]
  3. MOBIC [Concomitant]
  4. ZOLOFT [Concomitant]
  5. VITAMIN D [Concomitant]
  6. IRON [Concomitant]
  7. ASPIRIN [Concomitant]
     Dosage: 81 MG, UNK
  8. VITAMIN E [Concomitant]
  9. GLUCOSAMINE CHONDROITIN [Concomitant]
  10. SYNTHROID [Concomitant]
  11. CENTRUM SILVER                     /01292501/ [Concomitant]
  12. FORTEO [Suspect]
     Indication: OSTEOPOROSIS
     Dosage: 20 UG, QD
     Dates: start: 20100701

REACTIONS (9)
  - OSTEITIS DEFORMANS [None]
  - CONTUSION [None]
  - PAIN IN EXTREMITY [None]
  - DIZZINESS [None]
  - LIMB DEFORMITY [None]
  - MUSCLE SPASMS [None]
  - MALAISE [None]
  - NAUSEA [None]
  - ARTHRALGIA [None]
